FAERS Safety Report 4302469-X (Version None)
Quarter: 2004Q1

REPORT INFORMATION
  Report Type: 
  Country: None (occurrence: None)
  Receive Date: 20040218
  Receipt Date: 20031125
  Transmission Date: 20041129
  Serious: Yes (Other)
  Sender: FDA-Public Use
  Company Number: 200318023US

PATIENT
  Age: 11 Year
  Sex: Male
  Weight: 59 kg

DRUGS (9)
  1. LANTUS [Suspect]
     Indication: DIABETES MELLITUS INSULIN-DEPENDENT
     Dates: start: 20020301
  2. LANTUS [Suspect]
     Indication: DIABETES MELLITUS INSULIN-DEPENDENT
     Dosage: 42 U QD INJ
     Route: 042
  3. LANTUS [Suspect]
     Indication: DIABETES MELLITUS INSULIN-DEPENDENT
     Dosage: 32 U QD INJ
     Route: 042
  4. HUMALOG [Suspect]
     Indication: DIABETES MELLITUS INSULIN-DEPENDENT
     Dosage: 7 U INJ
     Route: 042
     Dates: start: 20010301
  5. HUMALOG [Suspect]
     Indication: DIABETES MELLITUS INSULIN-DEPENDENT
     Dosage: 8 U INJ
     Route: 042
     Dates: start: 20010302
  6. HUMALOG [Suspect]
     Indication: DIABETES MELLITUS INSULIN-DEPENDENT
     Dosage: 3 U INJ
     Route: 042
     Dates: start: 20010301
  7. STRATTERA [Concomitant]
  8. ALLEGRA [Concomitant]
  9. INSULIN HUMAN, INSULIN ISOPHANE, HUMAN BIOSYNTHETIC (HUMULIN) [Concomitant]

REACTIONS (1)
  - HYPOGLYCAEMIA [None]
